FAERS Safety Report 6168628-9 (Version None)
Quarter: 2009Q2

REPORT INFORMATION
  Report Type: 
  Country: None (occurrence: None)
  Receive Date: 20090424
  Receipt Date: 20090424
  Transmission Date: 20091009
  Serious: Yes (Hospitalization)
  Sender: FDA-Public Use
  Company Number: None

PATIENT
  Age: 88 Year
  Sex: Female

DRUGS (1)
  1. BACTRIM DS [Suspect]
     Indication: CELLULITIS
     Dosage: BACTRIM DS BID PO
     Route: 048

REACTIONS (5)
  - DEPRESSED LEVEL OF CONSCIOUSNESS [None]
  - FALL [None]
  - LEUKOPENIA [None]
  - PYREXIA [None]
  - RASH MACULO-PAPULAR [None]
